FAERS Safety Report 21383357 (Version 13)
Quarter: 2024Q2

REPORT INFORMATION
  Report Type: Report from Study
  Country: US (occurrence: US)
  Receive Date: 20220927
  Receipt Date: 20240525
  Transmission Date: 20240716
  Serious: Yes (Other)
  Sender: FDA-Public Use
  Company Number: US-ABBVIE-22K-163-4477910-00

PATIENT
  Sex: Female

DRUGS (14)
  1. HUMIRA [Suspect]
     Active Substance: ADALIMUMAB
     Indication: Uveitis
     Dosage: CITRATE FREE?FORM STRENGTH: 40 MILLIGRAM
     Route: 058
  2. HUMIRA [Suspect]
     Active Substance: ADALIMUMAB
     Indication: Ankylosing spondylitis
     Dosage: CITRATE FREE?FORM STRENGTH: 40 MG?LAST ADMIN DATE WAS MAR 2022
     Route: 058
     Dates: start: 20220301, end: 20220318
  3. HUMIRA [Suspect]
     Active Substance: ADALIMUMAB
     Indication: Rheumatoid arthritis
     Dosage: CITRATE FREE?FORM STRENGTH: 40 MILLIGRAM
     Route: 058
  4. HUMIRA [Suspect]
     Active Substance: ADALIMUMAB
     Dosage: CITRATE FREE?FORM STRENGTH: 40 MILLIGRAM
     Route: 058
     Dates: start: 202206
  5. HUMIRA [Suspect]
     Active Substance: ADALIMUMAB
     Dosage: CITRATE FREE?FORM STRENGTH: 40 MILLIGRAM
     Route: 058
     Dates: start: 20180301
  6. HUMIRA [Suspect]
     Active Substance: ADALIMUMAB
     Dosage: CITRATE FREE?FORM STRENGTH: 40 MILLIGRAM
     Route: 058
     Dates: start: 20220318
  7. HUMIRA [Suspect]
     Active Substance: ADALIMUMAB
     Dosage: CITRATE FREE?FORM STRENGTH: 40 MILLIGRAM
     Route: 058
  8. HUMIRA [Suspect]
     Active Substance: ADALIMUMAB
     Dosage: CITRATE FREE?FORM STRENGTH: 40 MILLIGRAM
     Route: 058
  9. HUMIRA [Suspect]
     Active Substance: ADALIMUMAB
     Dosage: CITRATE FREE?FORM STRENGTH: 40 MILLIGRAM
     Route: 058
  10. MODERNA COVID-19 VACCINE [Concomitant]
     Active Substance: ELASOMERAN
     Indication: COVID-19 immunisation
     Dosage: FIRST DOSE
     Route: 030
     Dates: start: 20210330, end: 20210330
  11. MODERNA COVID-19 VACCINE [Concomitant]
     Active Substance: ELASOMERAN
     Indication: COVID-19 immunisation
     Dosage: SECOND DOSE
     Route: 030
     Dates: start: 20210427, end: 20210427
  12. MODERNA COVID-19 VACCINE [Concomitant]
     Active Substance: ELASOMERAN
     Indication: COVID-19 immunisation
     Dosage: BOOSTER DOSE
     Route: 030
     Dates: start: 20210903, end: 20210903
  13. INSULIN NOS [Concomitant]
     Active Substance: INSULIN NOS
     Indication: Product used for unknown indication
  14. INSULIN NOS [Concomitant]
     Active Substance: INSULIN NOS
     Indication: Product used for unknown indication
     Dosage: DOSE INCREASED

REACTIONS (68)
  - Spinal fusion acquired [Unknown]
  - Dysphagia [Unknown]
  - Dry mouth [Unknown]
  - Cardiac disorder [Unknown]
  - Ear pain [Unknown]
  - Malaise [Recovering/Resolving]
  - Fibromyalgia [Unknown]
  - Immune system disorder [Unknown]
  - Nail discolouration [Recovering/Resolving]
  - COVID-19 [Recovering/Resolving]
  - Condition aggravated [Recovering/Resolving]
  - Back disorder [Unknown]
  - Feeling abnormal [Recovering/Resolving]
  - Synovial cyst [Unknown]
  - Intervertebral disc protrusion [Unknown]
  - Skin discolouration [Recovering/Resolving]
  - Frustration tolerance decreased [Unknown]
  - Ankylosing spondylitis [Unknown]
  - Pain in extremity [Recovering/Resolving]
  - Arthralgia [Recovering/Resolving]
  - Radiculopathy [Not Recovered/Not Resolved]
  - Trismus [Unknown]
  - Irritable bowel syndrome [Unknown]
  - Rash [Recovering/Resolving]
  - Vulvovaginal pain [Unknown]
  - Dyspepsia [Unknown]
  - Headache [Unknown]
  - Dry skin [Unknown]
  - Neuralgia [Unknown]
  - Back disorder [Unknown]
  - Spondylitis [Unknown]
  - Type 2 diabetes mellitus [Unknown]
  - Nausea [Recovering/Resolving]
  - Arthralgia [Recovering/Resolving]
  - White blood cell count increased [Unknown]
  - Spinal stenosis [Unknown]
  - Arthralgia [Recovered/Resolved]
  - Dry eye [Unknown]
  - Constipation [Unknown]
  - Dizziness postural [Unknown]
  - Cardiac amyloidosis [Unknown]
  - Emotional disorder [Unknown]
  - Autonomic neuropathy [Unknown]
  - Diarrhoea [Recovering/Resolving]
  - Night sweats [Unknown]
  - Abdominal pain upper [Recovering/Resolving]
  - Neck pain [Unknown]
  - Mobility decreased [Unknown]
  - Impaired gastric emptying [Recovering/Resolving]
  - Costochondritis [Unknown]
  - Dyspnoea [Recovering/Resolving]
  - Nodule [Unknown]
  - Foot deformity [Unknown]
  - Musculoskeletal stiffness [Unknown]
  - Neuropathy peripheral [Unknown]
  - Oropharyngeal pain [Recovered/Resolved]
  - Rhinorrhoea [Recovered/Resolved]
  - Nerve compression [Unknown]
  - Musculoskeletal stiffness [Recovering/Resolving]
  - Rash papular [Recovering/Resolving]
  - Rash pruritic [Recovering/Resolving]
  - Decreased appetite [Unknown]
  - Condition aggravated [Unknown]
  - Dysphonia [Unknown]
  - Inflammation [Unknown]
  - Balance disorder [Unknown]
  - Gastritis [Unknown]
  - Pain in extremity [Not Recovered/Not Resolved]

NARRATIVE: CASE EVENT DATE: 20220101
